FAERS Safety Report 5948143-5 (Version None)
Quarter: 2008Q4

REPORT INFORMATION
  Report Type: 
  Country: None (occurrence: None)
  Receive Date: 20081107
  Receipt Date: 20081027
  Transmission Date: 20090506
  Serious: Yes (Hospitalization, Other)
  Sender: FDA-Public Use
  Company Number: 2008AP002986

PATIENT
  Age: 71 Year
  Sex: Male

DRUGS (14)
  1. CARBAMAZEPINE [Suspect]
     Indication: EPILEPSY
     Dosage: 300 MG;PO
     Route: 048
     Dates: start: 20000901, end: 20080923
  2. SALMETEROL XINAFOATE (SALMETEROL XINAFOATE) [Concomitant]
  3. ZOPICLONE (ZOPICLONE) [Concomitant]
  4. CANDESARTAN CILEXETIL [Concomitant]
  5. HYDROCHLOROTHIAZIDE [Concomitant]
  6. ACETAMINOPHEN [Concomitant]
  7. CODEINE (CODEINE) [Concomitant]
  8. OXAZEPAM [Concomitant]
  9. ACETYLSALICYLIC ACID SRT [Concomitant]
  10. MAGNESIUM OXIDE (MAGNESIUM OXIDE) [Concomitant]
  11. LACTULOSE [Concomitant]
  12. GLIMEPIRIDE [Concomitant]
  13. BISACODYL (BISACODYL) [Concomitant]
  14. SIMVASTATIN [Concomitant]

REACTIONS (8)
  - AORTIC STENOSIS [None]
  - BACTERIAL INFECTION [None]
  - COR PULMONALE [None]
  - CULTURE URINE POSITIVE [None]
  - DEPRESSION [None]
  - ORGANISING PNEUMONIA [None]
  - PULMONARY HYPERTENSION [None]
  - RESPIRATORY FAILURE [None]
